FAERS Safety Report 4680584-9 (Version None)
Quarter: 2005Q2

REPORT INFORMATION
  Report Type: 
  Country: None (occurrence: None)
  Receive Date: 20050531
  Receipt Date: 20050307
  Transmission Date: 20051028
  Serious: No
  Sender: FDA-Public Use
  Company Number: WAES 0501USA02665

PATIENT
  Sex: Male

DRUGS (2)
  1. ZETIA [Suspect]
     Dosage: 10 MG/UNK/PO
     Route: 048
  2. PRAVACHOL [Concomitant]

REACTIONS (1)
  - HAIR COLOUR CHANGES [None]
